FAERS Safety Report 8890322 (Version 1)
Quarter: 2012Q4

REPORT INFORMATION
  Report Type: 
  Country: CA (occurrence: CA)
  Receive Date: 20121106
  Receipt Date: 20121106
  Transmission Date: 20130627
  Serious: Yes (Other)
  Sender: FDA-Public Use
  Company Number: PHHO2005CA02941

PATIENT
  Sex: Male

DRUGS (7)
  1. SANDOSTATIN LAR (PATIENT BASIS) [Suspect]
     Indication: ACROMEGALY
     Dosage: 30 mg, every 3 weeks
     Dates: start: 20040220
  2. SANDOSTATIN LAR (PATIENT BASIS) [Suspect]
     Dosage: 30 mg, every 4 months
     Route: 030
  3. MORPHINE [Concomitant]
     Indication: PAIN
  4. OXYCOCET [Concomitant]
     Indication: PAIN
  5. ALTACE [Concomitant]
  6. ATENOLOL [Concomitant]
     Indication: CHEST PAIN
     Dosage: 50 mg, Daily
     Dates: start: 20060217
  7. CEPHALEXIN [Concomitant]
     Dosage: 500 mg, QID

REACTIONS (44)
  - Depression [Unknown]
  - Anger [Unknown]
  - Pain [Unknown]
  - Hypertension [Unknown]
  - Blood pressure increased [Unknown]
  - Hyperglycaemia [Unknown]
  - Neoplasm progression [Unknown]
  - Joint swelling [Unknown]
  - Back pain [Unknown]
  - Muscle spasms [Unknown]
  - Arthralgia [Unknown]
  - Fluid retention [Unknown]
  - Weight increased [Unknown]
  - Tooth disorder [Unknown]
  - Ear infection [Recovering/Resolving]
  - Musculoskeletal stiffness [Unknown]
  - Hyperhidrosis [Unknown]
  - Axillary mass [Unknown]
  - Hypoaesthesia [Unknown]
  - Insomnia [Unknown]
  - Oedema peripheral [Unknown]
  - Pain in extremity [Unknown]
  - Malaise [Unknown]
  - Anxiety [Unknown]
  - Injection site reaction [Unknown]
  - Chest pain [Unknown]
  - Nasopharyngitis [Unknown]
  - Sinusitis [Unknown]
  - Epigastric discomfort [Unknown]
  - Carbuncle [Unknown]
  - Nose deformity [Unknown]
  - Oedema [Unknown]
  - Myalgia [Unknown]
  - Gastrointestinal disorder [Unknown]
  - Blood glucose increased [Unknown]
  - Hypoglycaemia [Unknown]
  - Dyspepsia [Unknown]
  - Diarrhoea [Unknown]
  - Constipation [Unknown]
  - Faeces pale [Unknown]
  - Malignant neoplasm progression [Unknown]
  - Abdominal pain [Unknown]
  - Injection site pain [Unknown]
  - Headache [Unknown]
